FAERS Safety Report 24136335 (Version 1)
Quarter: 2024Q3

REPORT INFORMATION
  Report Type: Spontaneous
  Country: PL (occurrence: PL)
  Receive Date: 20240725
  Receipt Date: 20240725
  Transmission Date: 20241017
  Serious: Yes (Hospitalization)
  Sender: RANBAXY
  Company Number: PL-URPL-DML-MLP.4401.1.778.2023

PATIENT
  Age: 20 Year
  Sex: Female
  Weight: 67 kg

DRUGS (2)
  1. IBUPROFEN [Suspect]
     Active Substance: IBUPROFEN
     Indication: Pyrexia
     Dosage: 200 MILLIGRAM, 1 TABL. AD HOC
     Route: 048
     Dates: start: 20221227, end: 20221228
  2. LEVETIRACETAM [Concomitant]
     Active Substance: LEVETIRACETAM
     Indication: Epilepsy
     Dosage: 500 MILLIGRAM, 1/2 TABL. THERAPY ONGOING
     Route: 048

REACTIONS (4)
  - Erythema [Recovering/Resolving]
  - Skin lesion [Recovering/Resolving]
  - Pruritus [Recovering/Resolving]
  - Erythema [Recovering/Resolving]

NARRATIVE: CASE EVENT DATE: 20221228
